FAERS Safety Report 9976507 (Version 1)
Quarter: 2014Q1

REPORT INFORMATION
  Report Type: Report from Study
  Country: US (occurrence: US)
  Receive Date: 20140306
  Receipt Date: 20140306
  Transmission Date: 20141002
  Serious: No
  Sender: FDA-Public Use
  Company Number: US-ABBVIE-13P-163-1167382-00

PATIENT
  Age: 24 Year
  Sex: Female

DRUGS (3)
  1. HUMIRA [Suspect]
     Indication: COLITIS ULCERATIVE
     Dates: start: 20131009, end: 20131009
  2. HUMIRA [Suspect]
     Dates: start: 20131023, end: 20131023
  3. HUMIRA [Suspect]

REACTIONS (1)
  - Inappropriate schedule of drug administration [Not Recovered/Not Resolved]
